FAERS Safety Report 9148542 (Version 1)
Quarter: 2013Q1

REPORT INFORMATION
  Report Type: Spontaneous
  Country: US (occurrence: None)
  Receive Date: 20130228
  Receipt Date: 20130228
  Transmission Date: 20140127
  Serious: Yes (Other)
  Sender: FDA-Public Use
  Company Number: None

PATIENT
  Age: 25 Year
  Sex: Male
  Weight: 63.5 kg

DRUGS (2)
  1. LAMOTRIGINE 150MG TABLETS (ZYDUS) [Suspect]
     Indication: BIPOLAR DISORDER
     Dates: start: 20121205, end: 20130205
  2. LAMOTRIGINE 200MG TABLETS (ZYDUS) [Suspect]
     Dates: start: 20130206, end: 20130312

REACTIONS (4)
  - Anxiety [None]
  - Depression [None]
  - Dizziness [None]
  - Testicular pain [None]
